FAERS Safety Report 5701615-0 (Version None)
Quarter: 2008Q2

REPORT INFORMATION
  Report Type: 
  Country: None (occurrence: None)
  Receive Date: 20080410
  Receipt Date: 20080410
  Transmission Date: 20081010
  Serious: Yes (Hospitalization, Other)
  Sender: FDA-Public Use
  Company Number: None

PATIENT
  Sex: Male

DRUGS (1)
  1. DILAUDID [Suspect]
     Indication: INTERVERTEBRAL DISC DEGENERATION
     Dosage: ONCE TAB TID
     Dates: start: 20080408

REACTIONS (1)
  - HYPERTENSION [None]
